FAERS Safety Report 5422589-6 (Version None)
Quarter: 2007Q3

REPORT INFORMATION
  Report Type: 
  Country: None (occurrence: None)
  Receive Date: 20070822
  Receipt Date: 20070821
  Transmission Date: 20080115
  Serious: Yes (Hospitalization)
  Sender: FDA-Public Use
  Company Number: FR-BRISTOL-MYERS SQUIBB COMPANY-13659867

PATIENT
  Age: 60 Year
  Sex: Male

DRUGS (11)
  1. APROVEL TABS 300 MG [Suspect]
     Indication: HYPERTENSION
     Route: 048
     Dates: start: 20061116, end: 20061116
  2. LASIX [Suspect]
     Indication: HYPERTENSION
     Dates: start: 20061116, end: 20061120
  3. SEROPRAM [Suspect]
     Indication: DEPRESSION
     Dates: start: 20061116
  4. ALLOPURINOL [Concomitant]
     Dates: start: 20061116
  5. GLUCOPHAGE [Concomitant]
     Dates: start: 20061116
  6. LEXOMIL [Concomitant]
     Dates: start: 20061116
  7. EUPANTOL [Concomitant]
  8. FLECAINIDE ACETATE [Concomitant]
  9. PERFALGAN [Concomitant]
  10. MEPRONIZINE [Concomitant]
  11. PREVISCAN [Concomitant]

REACTIONS (2)
  - HYPONATRAEMIA [None]
  - LACTIC ACIDOSIS [None]
